FAERS Safety Report 23172432 (Version 9)
Quarter: 2025Q1

REPORT INFORMATION
  Report Type: Report from Study
  Country: CA (occurrence: CA)
  Receive Date: 20231110
  Receipt Date: 20250320
  Transmission Date: 20250409
  Serious: Yes (Hospitalization, Other)
  Sender: GLAXOSMITHKLINE
  Company Number: CA-GLAXOSMITHKLINE-CA2023151551

PATIENT

DRUGS (6)
  1. BELIMUMAB [Suspect]
     Active Substance: BELIMUMAB
     Indication: Systemic lupus erythematosus
     Dosage: 10 MG/KG FROM 400 MG, Q4W
     Route: 042
     Dates: start: 20210421
  2. BELIMUMAB [Suspect]
     Active Substance: BELIMUMAB
     Dosage: 10 MG/KG, Q4W
     Route: 042
  3. BELIMUMAB [Suspect]
     Active Substance: BELIMUMAB
     Dosage: 10 MG/KG, Q4W INFUSION
  4. BELIMUMAB [Suspect]
     Active Substance: BELIMUMAB
     Dosage: 10 MG/KG, Q4W
     Route: 042
  5. PROGRAF [Suspect]
     Active Substance: TACROLIMUS
     Indication: Product used for unknown indication
     Route: 048
     Dates: end: 20231013
  6. PROGRAF [Suspect]
     Active Substance: TACROLIMUS
     Dates: start: 202407

REACTIONS (14)
  - Renal impairment [Unknown]
  - Nephrotic syndrome [Unknown]
  - Systemic lupus erythematosus [Unknown]
  - Blood test abnormal [Unknown]
  - Hypertension [Not Recovered/Not Resolved]
  - Ear infection [Not Recovered/Not Resolved]
  - Discomfort [Not Recovered/Not Resolved]
  - Skin plaque [Not Recovered/Not Resolved]
  - Systemic lupus erythematosus rash [Recovered/Resolved]
  - Pruritus [Unknown]
  - Influenza [Not Recovered/Not Resolved]
  - Bronchitis [Not Recovered/Not Resolved]
  - Streptococcus test positive [Not Recovered/Not Resolved]
  - Inappropriate schedule of product administration [Unknown]

NARRATIVE: CASE EVENT DATE: 20240801
